FAERS Safety Report 7824378-1 (Version None)
Quarter: 2011Q4

REPORT INFORMATION
  Report Type: 
  Country: None (occurrence: None)
  Receive Date: 20111019
  Receipt Date: 20111014
  Transmission Date: 20120403
  Serious: Yes (Hospitalization)
  Sender: FDA-Public Use
  Company Number: DE-BRISTOL-MYERS SQUIBB COMPANY-16166738

PATIENT
  Age: 67 Year
  Sex: Female
  Weight: 52 kg

DRUGS (3)
  1. GEMCITABINE HYDROCHLORIDE [Suspect]
     Indication: NON-SMALL CELL LUNG CANCER
     Dosage: LAST RECIVED ON27SEP11. NO OF INF:2
     Route: 042
     Dates: start: 20110920
  2. NECITUMUMAB [Suspect]
     Indication: NON-SMALL CELL LUNG CANCER
     Dosage: LAST RECIVED ON27SEP11. NO OF INF:2
     Route: 042
     Dates: start: 20110920
  3. CISPLATIN [Suspect]
     Indication: NON-SMALL CELL LUNG CANCER
     Dosage: LAST DOSE ON 20SEP2011 NO OF INF:1
     Route: 042
     Dates: start: 20110920

REACTIONS (1)
  - RENAL INFARCT [None]
